FAERS Safety Report 8493437-5 (Version None)
Quarter: 2012Q2

REPORT INFORMATION
  Report Type: 
  Country: None (occurrence: None)
  Receive Date: 20120402
  Receipt Date: 20090317
  Transmission Date: 20120825
  Serious: Yes (Other)
  Sender: FDA-Public Use
  Company Number: PHEH2009US02750

PATIENT
  Sex: Female

DRUGS (1)
  1. EXFORGE [Suspect]
     Dates: start: 20081001, end: 20090301

REACTIONS (2)
  - DEPRESSION [None]
  - DIABETES MELLITUS [None]
